FAERS Safety Report 16031909 (Version 4)
Quarter: 2019Q2

REPORT INFORMATION
  Report Type: Report from Study
  Country: PL (occurrence: PL)
  Receive Date: 20190304
  Receipt Date: 20190610
  Transmission Date: 20190711
  Serious: Yes (Hospitalization)
  Sender: FDA-Public Use
  Company Number: PHHO2018PL012122

PATIENT
  Age: 42 Year
  Sex: Female
  Weight: 52 kg

DRUGS (7)
  1. LETROZOLE. [Suspect]
     Active Substance: LETROZOLE
     Indication: BREAST CANCER
     Dosage: 2.5 MG, QD
     Route: 048
     Dates: start: 20171017, end: 20181101
  2. IBUPROM MAX [Concomitant]
     Indication: BONE PAIN
     Dosage: 400 MG, QW
     Route: 048
  3. BONEFOS [Concomitant]
     Active Substance: CLODRONATE DISODIUM
     Indication: METASTASES TO BONE
     Dosage: 400 MG, BID
     Route: 048
     Dates: start: 20170816, end: 20181101
  4. GOSERELIN ACETATE [Suspect]
     Active Substance: GOSERELIN ACETATE
     Indication: BREAST CANCER
     Dosage: 3.6 MG, Q4W
     Route: 058
     Dates: start: 20171017
  5. LEE011 [Suspect]
     Active Substance: RIBOCICLIB
     Indication: BREAST CANCER
     Dosage: 600 MG, QD
     Route: 048
     Dates: start: 20171017, end: 20181101
  6. EBIVOL [Concomitant]
     Indication: PULSE ABNORMAL
     Route: 048
     Dates: start: 20171116, end: 20181101
  7. PRENESSA [Concomitant]
     Active Substance: PERINDOPRIL
     Indication: PULSE ABNORMAL
     Dosage: 2 MG, QD
     Route: 048
     Dates: start: 20171116, end: 20181101

REACTIONS (2)
  - Leukopenia [Recovered/Resolved]
  - Febrile neutropenia [Recovered/Resolved]

NARRATIVE: CASE EVENT DATE: 20181101
